FAERS Safety Report 6184519-1 (Version None)
Quarter: 2009Q2

REPORT INFORMATION
  Report Type: 
  Country: None (occurrence: None)
  Receive Date: 20090508
  Receipt Date: 20090430
  Transmission Date: 20091009
  Serious: Yes (Death, Hospitalization, Other)
  Sender: FDA-Public Use
  Company Number: AT-AMGEN-UK316763

PATIENT
  Sex: Female

DRUGS (4)
  1. ROMIPLOSTIM [Suspect]
     Indication: IDIOPATHIC THROMBOCYTOPENIC PURPURA
     Route: 058
     Dates: start: 20080925, end: 20081008
  2. AUGMENTIN '125' [Suspect]
     Indication: INFECTION
     Route: 065
  3. LEVOTHYROXINE SODIUM [Concomitant]
  4. PANTOLAX [Concomitant]

REACTIONS (2)
  - HAEMOLYSIS [None]
  - URINARY TRACT INFECTION [None]
